FAERS Safety Report 6806684-2 (Version None)
Quarter: 2010Q2

REPORT INFORMATION
  Report Type: 
  Country: None (occurrence: None)
  Receive Date: 20100629
  Receipt Date: 20080401
  Transmission Date: 20101027
  Serious: No
  Sender: FDA-Public Use
  Company Number: US-PFIZER INC-2008029741

PATIENT
  Sex: Female
  Weight: 64.545 kg

DRUGS (3)
  1. MEDROL [Suspect]
     Indication: TINNITUS
     Dates: start: 20080331
  2. MEDROL [Suspect]
     Indication: EAR DISCOMFORT
  3. VITAMINS [Concomitant]

REACTIONS (4)
  - EXPIRED DRUG ADMINISTERED [None]
  - FATIGUE [None]
  - FEELING JITTERY [None]
  - NAUSEA [None]
